FAERS Safety Report 6339808-4 (Version None)
Quarter: 2009Q3

REPORT INFORMATION
  Report Type: 
  Country: None (occurrence: None)
  Receive Date: 20090903
  Receipt Date: 20090825
  Transmission Date: 20100115
  Serious: Yes (Hospitalization)
  Sender: FDA-Public Use
  Company Number: PHHY2009IE36109

PATIENT
  Sex: Female

DRUGS (1)
  1. CLOZARIL [Suspect]
     Indication: SCHIZOPHRENIA
     Dosage: 200 MG DAILY
     Dates: start: 20000215, end: 20090815

REACTIONS (4)
  - ABDOMINAL PAIN [None]
  - DUODENAL PERFORATION [None]
  - LAPAROTOMY [None]
  - SEPSIS [None]
